FAERS Safety Report 5828561-6 (Version None)
Quarter: 2008Q3

REPORT INFORMATION
  Report Type: 
  Country: None (occurrence: None)
  Receive Date: 20080731
  Receipt Date: 20080724
  Transmission Date: 20090109
  Serious: Yes (Hospitalization)
  Sender: FDA-Public Use
  Company Number: US-AVENTIS-200814678US

PATIENT
  Age: 58 Year
  Sex: Female

DRUGS (3)
  1. ALLEGRA [Suspect]
     Dosage: DOSE: UNK
  2. SANCTURA [Suspect]
     Indication: HYPERTONIC BLADDER
     Route: 048
  3. HYDROCHLOROTHIAZIDE [Suspect]
     Dosage: DOSE: UNK

REACTIONS (1)
  - GRAND MAL CONVULSION [None]
